FAERS Safety Report 10511249 (Version 1)
Quarter: 2014Q4

REPORT INFORMATION
  Report Type: Spontaneous
  Country: JP (occurrence: None)
  Receive Date: 20141008
  Receipt Date: 20141008
  Transmission Date: 20150528
  Serious: Yes (Other)
  Sender: FDA-Public Use
  Company Number: INT_00436_2014

PATIENT
  Age: 32 Year
  Sex: Male
  Weight: 55.1 kg

DRUGS (3)
  1. CISPLATIN (CISPLATIN) (HQ SPECIALTY) [Suspect]
     Active Substance: CISPLATIN
     Indication: TESTIS CANCER
     Dosage: [AT LEAST 4 CYCLES]
  2. BLEOMYCIN [Suspect]
     Active Substance: BLEOMYCIN SULFATE
     Indication: TESTIS CANCER
     Dosage: [AT LEAST 4 CYCLES]
  3. ETOPOSIDE (ETOPOSIDE) [Suspect]
     Active Substance: ETOPOSIDE
     Indication: TESTIS CANCER
     Dosage: [AT LEAST 4 CYCLES]

REACTIONS (7)
  - Pneumonia [None]
  - Cough [None]
  - Pyrexia [None]
  - Metastases to lung [None]
  - Metastases to lymph nodes [None]
  - Lung abscess [None]
  - Pleural effusion [None]
